FAERS Safety Report 10441079 (Version 1)
Quarter: 2014Q3

REPORT INFORMATION
  Report Type: Spontaneous
  Country: US (occurrence: None)
  Receive Date: 20140905
  Receipt Date: 20140905
  Transmission Date: 20150326
  Serious: Yes (Other)
  Sender: FDA-Public Use
  Company Number: C14 051 AE

PATIENT
  Age: 10 Month
  Sex: Female

DRUGS (1)
  1. FIRST OMEPRAZOLE RX [Suspect]
     Active Substance: OMEPRAZOLE
     Indication: GASTROOESOPHAGEAL REFLUX DISEASE
     Route: 048
     Dates: start: 20140806, end: 20140812

REACTIONS (8)
  - Product colour issue [None]
  - Regurgitation [None]
  - Product process control issue [None]
  - Abnormal behaviour [None]
  - Eating disorder [None]
  - Crying [None]
  - Drug ineffective [None]
  - Torticollis [None]

NARRATIVE: CASE EVENT DATE: 20140808
